FAERS Safety Report 7290160-X (Version None)
Quarter: 2011Q1

REPORT INFORMATION
  Report Type: 
  Country: None (occurrence: None)
  Receive Date: 20110214
  Receipt Date: 20110201
  Transmission Date: 20110831
  Serious: Yes (Other)
  Sender: FDA-Public Use
  Company Number: PHHY2010FR87251

PATIENT
  Sex: Female

DRUGS (12)
  1. ELUDRIL [Concomitant]
     Dosage: DAILY
     Dates: start: 20100901
  2. CORTICOSTEROID NOS [Concomitant]
     Dosage: 20 MG, DAILY
     Dates: start: 20110107
  3. AFINITOR [Suspect]
     Indication: METASTASES TO LUNG
     Dosage: 5 MG, DAILY
     Route: 048
     Dates: start: 20101201, end: 20110101
  4. CLARITIN [Concomitant]
     Indication: RASH
     Dosage: DAILY
     Dates: start: 20100929
  5. DEXERYL [Concomitant]
     Dosage: DAILY
     Route: 061
     Dates: start: 20100901
  6. LEVOTHYROX [Concomitant]
     Dosage: DAILY
     Route: 048
  7. ESOMEPRAZOLE [Concomitant]
     Dosage: DAILY
     Route: 048
     Dates: start: 20100901
  8. IMODIUM [Concomitant]
     Dosage: DAILY
     Dates: start: 20100901
  9. CORTICOSTEROID NOS [Concomitant]
     Dosage: 40 MG, DAILY
     Dates: start: 20101201
  10. CORTICOSTEROID NOS [Concomitant]
     Dosage: 30 MG, DAILY
  11. AFINITOR [Suspect]
     Indication: RENAL CELL CARCINOMA
     Dosage: 1 DF, QD
     Route: 048
     Dates: start: 20100801, end: 20101125
  12. FOSAMAX [Concomitant]
     Dosage: DAILY
     Route: 048

REACTIONS (7)
  - DECREASED APPETITE [None]
  - INTERSTITIAL LUNG DISEASE [None]
  - ASTHENIA [None]
  - SYSTEMIC INFLAMMATORY RESPONSE SYNDROME [None]
  - C-REACTIVE PROTEIN INCREASED [None]
  - COUGH [None]
  - PYREXIA [None]
